FAERS Safety Report 7057141-2 (Version None)
Quarter: 2010Q4

REPORT INFORMATION
  Report Type: 
  Country: None (occurrence: None)
  Receive Date: 20101022
  Receipt Date: 20101012
  Transmission Date: 20110411
  Serious: Yes (Other)
  Sender: FDA-Public Use
  Company Number: PHFR2010GB04756

PATIENT

DRUGS (2)
  1. RITALIN [Suspect]
     Dosage: 25 MG, TID
     Route: 065
  2. STRATTERA [Concomitant]

REACTIONS (1)
  - CARDIOMYOPATHY [None]
